FAERS Safety Report 10607297 (Version 1)
Quarter: 2014Q4

REPORT INFORMATION
  Report Type: Spontaneous
  Country: US (occurrence: None)
  Receive Date: 20141124
  Receipt Date: 20141124
  Transmission Date: 20150529
  Serious: Yes (Hospitalization)
  Sender: FDA-Public Use
  Company Number: None

PATIENT
  Age: 84 Year
  Sex: Male
  Weight: 71.5 kg

DRUGS (12)
  1. COUMADIN [Concomitant]
     Active Substance: WARFARIN SODIUM
  2. ATORVASTATIN [Concomitant]
     Active Substance: ATORVASTATIN
  3. TRAZODONE [Concomitant]
     Active Substance: TRAZODONE HYDROCHLORIDE
  4. FLONASE [Concomitant]
     Active Substance: FLUTICASONE PROPIONATE
  5. DIGOXIN. [Suspect]
     Active Substance: DIGOXIN
     Indication: SEIZURE
     Dosage: CHRONIC
     Route: 048
  6. ALTACE [Concomitant]
     Active Substance: RAMIPRIL
  7. ASA [Concomitant]
     Active Substance: ASPIRIN
  8. FINASTERIDE. [Concomitant]
     Active Substance: FINASTERIDE
  9. FLOMAX [Concomitant]
     Active Substance: TAMSULOSIN HYDROCHLORIDE
  10. TOPROL XL [Concomitant]
     Active Substance: METOPROLOL SUCCINATE
  11. CENTRUM SILVER [Concomitant]
     Active Substance: VITAMINS
  12. PROTONIX [Concomitant]
     Active Substance: PANTOPRAZOLE SODIUM

REACTIONS (7)
  - Vomiting [None]
  - Asthenia [None]
  - Toxicity to various agents [None]
  - International normalised ratio increased [None]
  - Decreased appetite [None]
  - Bradycardia [None]
  - Nausea [None]

NARRATIVE: CASE EVENT DATE: 20140420
